FAERS Safety Report 10213313 (Version 1)
Quarter: 2014Q2

REPORT INFORMATION
  Report Type: Spontaneous
  Country: IN (occurrence: IN)
  Receive Date: 20140603
  Receipt Date: 20140603
  Transmission Date: 20141212
  Serious: Yes (Hospitalization)
  Sender: FDA-Public Use
  Company Number: IN-ACCORD-023949

PATIENT
  Age: 17 Year
  Sex: Female

DRUGS (1)
  1. RAMIPRIL [Suspect]

REACTIONS (7)
  - Overdose [Unknown]
  - Cardiogenic shock [Recovered/Resolved]
  - Renal failure acute [Recovered/Resolved]
  - Hepatic function abnormal [Recovered/Resolved]
  - Lactic acidosis [Recovered/Resolved]
  - Hyperkalaemia [Recovered/Resolved]
  - Suicide attempt [Recovered/Resolved]
